FAERS Safety Report 8725159 (Version 2)
Quarter: 2012Q4

REPORT INFORMATION
  Report Type: Report from Study
  Country: FR (occurrence: FR)
  Receive Date: 20120815
  Receipt Date: 20120828
  Transmission Date: 20130627
  Serious: Yes (Hospitalization, Other)
  Sender: FDA-Public Use
  Company Number: PHHY2012FR069853

PATIENT
  Sex: Female
  Weight: 50 kg

DRUGS (3)
  1. GLEEVEC [Suspect]
     Indication: CHRONIC MYELOID LEUKAEMIA
     Dosage: 600 mg, daily
     Route: 048
     Dates: start: 20060809
  2. GLEEVEC [Suspect]
     Dosage: 300 mg, UNK
     Route: 048
     Dates: start: 201201
  3. SEROPLEX [Concomitant]

REACTIONS (3)
  - Breast cancer [Recovering/Resolving]
  - Skin reaction [Recovering/Resolving]
  - Breast cancer female [None]
